FAERS Safety Report 5965736-X (Version None)
Quarter: 2008Q4

REPORT INFORMATION
  Report Type: 
  Country: None (occurrence: None)
  Receive Date: 20081125
  Receipt Date: 20081121
  Transmission Date: 20090506
  Serious: Yes (Other)
  Sender: FDA-Public Use
  Company Number: B0505354A

PATIENT
  Age: 36 Year
  Sex: Female
  Weight: 75 kg

DRUGS (4)
  1. PAROXETINE HCL [Suspect]
     Indication: DEPRESSION
     Dosage: 20MG TWICE PER DAY
     Route: 048
     Dates: start: 19990701, end: 20081101
  2. PAROXETINE HCL [Suspect]
     Indication: DRUG USE FOR UNKNOWN INDICATION
     Route: 065
  3. PARACETAMOL [Concomitant]
     Dosage: 500MG TWICE PER DAY
     Route: 048
  4. SERETIDE [Concomitant]
     Route: 055
     Dates: start: 20081001

REACTIONS (7)
  - AFFECT LABILITY [None]
  - DRUG WITHDRAWAL SYNDROME [None]
  - DRY MOUTH [None]
  - MUSCLE SPASMS [None]
  - RESTLESSNESS [None]
  - TACHYCARDIA [None]
  - WEIGHT INCREASED [None]
